FAERS Safety Report 5160290-7 (Version None)
Quarter: 2006Q4

REPORT INFORMATION
  Report Type: 
  Country: None (occurrence: None)
  Receive Date: 20061129
  Receipt Date: 20061120
  Transmission Date: 20070319
  Serious: Yes (Hospitalization)
  Sender: FDA-Public Use
  Company Number: FR-GLAXOSMITHKLINE-B0447275A

PATIENT
  Age: 45 Year
  Sex: Male

DRUGS (5)
  1. TRIZIVIR [Suspect]
     Indication: HIV INFECTION
     Dosage: 2UNIT PER DAY
     Route: 048
     Dates: start: 20060707, end: 20061013
  2. TRIATEC [Concomitant]
     Route: 065
  3. TENORMIN [Concomitant]
     Route: 065
  4. ASPIRIN [Concomitant]
     Route: 065
  5. NEXIUM [Concomitant]
     Route: 065

REACTIONS (4)
  - APLASTIC ANAEMIA [None]
  - HYPERGAMMAGLOBULINAEMIA [None]
  - NAUSEA [None]
  - VOMITING [None]
